FAERS Safety Report 6667521-2 (Version None)
Quarter: 2010Q2

REPORT INFORMATION
  Report Type: 
  Country: None (occurrence: None)
  Receive Date: 20100401
  Receipt Date: 20100318
  Transmission Date: 20101027
  Serious: Yes (Hospitalization, Other)
  Sender: FDA-Public Use
  Company Number: 2010EK000004

PATIENT
  Age: 71 Year
  Sex: Male
  Weight: 86.1834 kg

DRUGS (1)
  1. DEPODUR  (MORPHINE SULFATE EXTENDED RELEASE LIPOSOME) [Suspect]
     Indication: PROCEDURAL PAIN
     Dosage: 6 MG; X1; ED
     Route: 008
     Dates: start: 20100309, end: 20100309

REACTIONS (2)
  - CONFUSIONAL STATE [None]
  - PNEUMONIA [None]
